FAERS Safety Report 5854970-5 (Version None)
Quarter: 2008Q3

REPORT INFORMATION
  Report Type: 
  Country: None (occurrence: None)
  Receive Date: 20080822
  Receipt Date: 20080819
  Transmission Date: 20090109
  Serious: Yes (Other)
  Sender: FDA-Public Use
  Company Number: ZA-MERCK-0808ZAF00014

PATIENT
  Age: 13 Year
  Sex: Male

DRUGS (3)
  1. SINGULAIR [Suspect]
     Indication: ASTHMA
     Route: 048
     Dates: start: 20080101
  2. CORTICOSTEROIDS (UNSPECIFIED) [Concomitant]
  3. [THERAPY UNSPECIFIED] [Concomitant]
     Route: 065

REACTIONS (2)
  - NERVOUS SYSTEM DISORDER [None]
  - PETIT MAL EPILEPSY [None]
